FAERS Safety Report 6771862-8 (Version None)
Quarter: 2010Q2

REPORT INFORMATION
  Report Type: 
  Country: None (occurrence: None)
  Receive Date: 20100616
  Receipt Date: 20090519
  Transmission Date: 20101027
  Serious: No
  Sender: FDA-Public Use
  Company Number: US-ASTRAZENECA-2009UW12936

PATIENT
  Age: 73 Year
  Sex: Male
  Weight: 83.5 kg

DRUGS (6)
  1. ENTOCORT EC [Suspect]
     Route: 048
  2. VALTREX [Concomitant]
     Indication: EYE INFECTION
  3. NEXIUM [Concomitant]
     Route: 048
  4. AVODART [Concomitant]
  5. COZAAR [Concomitant]
     Indication: BLOOD PRESSURE
  6. BALSALAZIDE [Concomitant]

REACTIONS (3)
  - COLITIS [None]
  - DRUG INEFFECTIVE [None]
  - HAEMORRHAGE [None]
